FAERS Safety Report 12239141 (Version 6)
Quarter: 2016Q3

REPORT INFORMATION
  Report Type: Report from Study
  Country: US (occurrence: US)
  Receive Date: 20160405
  Receipt Date: 20160804
  Transmission Date: 20161109
  Serious: Yes (Death)
  Sender: FDA-Public Use
  Company Number: PHEH2016US007911

PATIENT
  Age: 72 Year
  Sex: Male

DRUGS (19)
  1. LASIX [Suspect]
     Active Substance: FUROSEMIDE
     Indication: PRODUCT USED FOR UNKNOWN INDICATION
     Route: 065
  2. COREG [Concomitant]
     Active Substance: CARVEDILOL
     Dosage: UNK, BID
     Route: 065
  3. ENTRESTO [Suspect]
     Active Substance: SACUBITRIL\VALSARTAN
     Indication: CARDIAC FAILURE
     Dosage: 50 MG (24/26 MG),
     Route: 065
  4. MULTI VITAMIN [Concomitant]
     Active Substance: VITAMINS
     Indication: PRODUCT USED FOR UNKNOWN INDICATION
     Route: 065
  5. ENTRESTO [Suspect]
     Active Substance: SACUBITRIL\VALSARTAN
     Dosage: 50 MG (24/26 MG)
     Route: 065
  6. EPLERENONE. [Suspect]
     Active Substance: EPLERENONE
     Indication: PRODUCT USED FOR UNKNOWN INDICATION
     Dosage: 12.5 MG, QD
     Route: 065
  7. CALCIUM [Concomitant]
     Active Substance: CALCIUM
     Indication: PRODUCT USED FOR UNKNOWN INDICATION
     Dosage: 600 MG, BID
     Route: 065
  8. FUROSEMIDE. [Concomitant]
     Active Substance: FUROSEMIDE
     Dosage: 40 MG, QD
     Route: 065
  9. PRIMACOR [Concomitant]
     Active Substance: MILRINONE LACTATE
     Indication: PRODUCT USED FOR UNKNOWN INDICATION
     Dosage: 400 MG, QD
     Route: 065
  10. DIGOXIN. [Concomitant]
     Active Substance: DIGOXIN
     Dosage: 0.125 MG, QOD
     Route: 065
  11. CARVEDILOL. [Concomitant]
     Active Substance: CARVEDILOL
     Indication: PRODUCT USED FOR UNKNOWN INDICATION
     Route: 065
  12. CULTURELLE [Concomitant]
     Active Substance: LACTOBACILLUS RHAMNOSUS
     Indication: DYSPEPSIA
     Dosage: UNK UNK, QD
     Route: 065
  13. INSPRA [Concomitant]
     Active Substance: EPLERENONE
     Indication: PRODUCT USED FOR UNKNOWN INDICATION
     Route: 065
  14. AMIODARONE [Concomitant]
     Active Substance: AMIODARONE
     Indication: ATRIAL FIBRILLATION
     Dosage: 200 MG, QD
     Route: 065
  15. AMIODARONE [Concomitant]
     Active Substance: AMIODARONE
     Dosage: 100 MG, UNK
     Route: 065
  16. MILRINONE [Concomitant]
     Active Substance: MILRINONE
     Indication: PRODUCT USED FOR UNKNOWN INDICATION
     Route: 065
  17. ENTRESTO [Suspect]
     Active Substance: SACUBITRIL\VALSARTAN
     Dosage: 100 MG (49/51 MG), BID
     Route: 065
  18. WARFARIN [Suspect]
     Active Substance: WARFARIN
     Indication: CARDIAC FAILURE
     Dosage: 5 MG, QD
     Route: 065
  19. FUROSEMIDE. [Concomitant]
     Active Substance: FUROSEMIDE
     Dosage: 20 MG, QD
     Route: 065

REACTIONS (6)
  - Renal function test abnormal [Recovering/Resolving]
  - Hypotension [Unknown]
  - Death [Fatal]
  - Weight increased [Recovered/Resolved]
  - Pulmonary arterial pressure increased [Recovering/Resolving]
  - Fatigue [Recovering/Resolving]

NARRATIVE: CASE EVENT DATE: 20160330
